FAERS Safety Report 5474564-3 (Version None)
Quarter: 2007Q3

REPORT INFORMATION
  Report Type: 
  Country: None (occurrence: None)
  Receive Date: 20070928
  Receipt Date: 20070918
  Transmission Date: 20080115
  Serious: Yes (Other)
  Sender: FDA-Public Use
  Company Number: US021000

PATIENT
  Age: 35 Year
  Sex: Female

DRUGS (5)
  1. FENTORA [Suspect]
     Indication: MIGRAINE
     Dosage: BUCCAL
     Route: 002
     Dates: start: 20070401
  2. FENTORA [Suspect]
     Indication: PAIN
     Dosage: BUCCAL
     Route: 002
     Dates: start: 20070401
  3. OXYCODONE HCL [Concomitant]
  4. LORTAB [Concomitant]
  5. FENTANYL [Concomitant]

REACTIONS (6)
  - IMPAIRED DRIVING ABILITY [None]
  - LOSS OF CONSCIOUSNESS [None]
  - PH BODY FLUID ABNORMAL [None]
  - POOR QUALITY DRUG ADMINISTERED [None]
  - RESPIRATORY ARREST [None]
  - SKIN DISCOLOURATION [None]
